FAERS Safety Report 5594296-0 (Version None)
Quarter: 2008Q1

REPORT INFORMATION
  Report Type: 
  Country: None (occurrence: None)
  Receive Date: 20080117
  Receipt Date: 20080111
  Transmission Date: 20080703
  Serious: Yes (Other)
  Sender: FDA-Public Use
  Company Number: PHEH2008US00778

PATIENT
  Sex: Female

DRUGS (1)
  1. DIOVAN HCT [Suspect]
     Dosage: 80/12.5 MG, UNK
     Dates: start: 20070101

REACTIONS (3)
  - COELIAC DISEASE [None]
  - DYSPEPSIA [None]
  - NAUSEA [None]
